FAERS Safety Report 10075533 (Version 3)
Quarter: 2014Q2

REPORT INFORMATION
  Report Type: Spontaneous
  Country: US (occurrence: US)
  Receive Date: 20140414
  Receipt Date: 20140609
  Transmission Date: 20141212
  Serious: Yes (Disabling)
  Sender: FDA-Public Use
  Company Number: US-AMGEN-USASP2014026141

PATIENT
  Age: 58 Year
  Sex: Female
  Weight: 72.11 kg

DRUGS (3)
  1. PROLIA [Suspect]
     Indication: OSTEOPOROSIS POSTMENOPAUSAL
     Dosage: 1 UNK, UNK
     Route: 030
     Dates: start: 20140204
  2. IBUPROFEN [Concomitant]
     Indication: PAIN
     Dosage: UNK
     Route: 048
  3. CALCIUM +VIT D [Concomitant]
     Indication: OSTEOPOROSIS
     Dosage: UNK
     Route: 048
     Dates: start: 2009

REACTIONS (8)
  - Hypersensitivity [Unknown]
  - Neuropathy peripheral [Not Recovered/Not Resolved]
  - Chills [Recovered/Resolved]
  - Malaise [Not Recovered/Not Resolved]
  - Myalgia [Recovered/Resolved]
  - Fatigue [Recovered/Resolved]
  - Pain in extremity [Recovered/Resolved]
  - Arthralgia [Recovered/Resolved]
